FAERS Safety Report 9859650 (Version 2)
Quarter: 2014Q1

REPORT INFORMATION
  Report Type: Spontaneous
  Country: US (occurrence: US)
  Receive Date: 20140131
  Receipt Date: 20140131
  Transmission Date: 20141002
  Serious: Yes (Disabling, Other)
  Sender: FDA-Public Use
  Company Number: US-GE HEALTHCARE MEDICAL DIAGNOSTICS-OSCN-PR-0811S-0613

PATIENT
  Age: 30 Year
  Sex: Female

DRUGS (7)
  1. OMNISCAN [Suspect]
     Indication: ARTERIOVENOUS MALFORMATION
     Dates: start: 19980506, end: 19980506
  2. OMNISCAN [Suspect]
     Indication: PRODUCT USED FOR UNKNOWN INDICATION
     Dates: start: 19980929, end: 19980929
  3. OMNISCAN [Suspect]
     Indication: HEADACHE
     Dates: start: 20040315, end: 20040315
  4. OMNISCAN [Suspect]
     Indication: VASCULITIS
     Dates: start: 20070222, end: 20070222
  5. OMNISCAN [Suspect]
     Dates: start: 20070226, end: 20070226
  6. GADOLINIUM (UNSPECIFIED) [Suspect]
     Indication: HEADACHE
     Dates: start: 20011212, end: 20011212
  7. GADOLINIUM (UNSPECIFIED) [Suspect]
     Indication: PRODUCT USED FOR UNKNOWN INDICATION
     Dates: start: 20070311, end: 20070311

REACTIONS (1)
  - Nephrogenic systemic fibrosis [Not Recovered/Not Resolved]
